FAERS Safety Report 13791694 (Version 1)
Quarter: 2017Q3

REPORT INFORMATION
  Report Type: Spontaneous
  Country: US (occurrence: US)
  Receive Date: 20170725
  Receipt Date: 20170725
  Transmission Date: 20171127
  Serious: Yes (Disabling)
  Sender: FDA-Public Use
  Company Number: None

PATIENT
  Age: 66 Year
  Sex: Female
  Weight: 56.25 kg

DRUGS (9)
  1. BIOTIN [Concomitant]
     Active Substance: BIOTIN
  2. THYROID [Suspect]
     Active Substance: LEVOTHYROXINE\LIOTHYRONINE
     Indication: THYROID HORMONES DECREASED
     Dosage: ?          QUANTITY:1 TABLET(S);?
     Route: 048
     Dates: start: 20170501, end: 20170717
  3. ARMOUR THYROID [Concomitant]
     Active Substance: THYROID, PORCINE
  4. NIACIN. [Concomitant]
     Active Substance: NIACIN
  5. PRESERVISION AREDS 2 [Concomitant]
  6. BI-EST [Concomitant]
  7. PROGESTERONE. [Concomitant]
     Active Substance: PROGESTERONE
  8. VITAMIN D3 [Concomitant]
     Active Substance: CHOLECALCIFEROL
  9. BILBERRY [Concomitant]
     Active Substance: BILBERRY

REACTIONS (4)
  - Therapeutic response changed [None]
  - Alopecia [None]
  - Drug level changed [None]
  - Product substitution issue [None]

NARRATIVE: CASE EVENT DATE: 20170501
